FAERS Safety Report 20427791 (Version 2)
Quarter: 2022Q1

REPORT INFORMATION
  Report Type: Other
  Country: DE (occurrence: None)
  Receive Date: 20220204
  Receipt Date: 20220325
  Transmission Date: 20220423
  Serious: Yes (Congenital Anomaly, Other)
  Sender: FDA-Public Use
  Company Number: DE-ROCHE-2712784

PATIENT
  Age: 0 Year
  Sex: Male
  Weight: 5.22 kg

DRUGS (16)
  1. OCRELIZUMAB [Suspect]
     Active Substance: OCRELIZUMAB
     Indication: Product used for unknown indication
     Dosage: PATIENT^S MOTHER DOSE WAS 300 MG?NEXT INFUSION WAS PLANNED ON 12/NOV/2020
     Route: 064
     Dates: start: 20191206, end: 20191220
  2. LEVOTHYROXINE SODIUM [Concomitant]
     Active Substance: LEVOTHYROXINE SODIUM
     Dates: start: 201806
  3. CORTISONE ACETATE [Concomitant]
     Active Substance: CORTISONE ACETATE
     Dates: start: 20191206, end: 20191206
  4. CORTISONE ACETATE [Concomitant]
     Active Substance: CORTISONE ACETATE
     Dates: start: 20191220, end: 20191220
  5. CORTISONE ACETATE [Concomitant]
     Active Substance: CORTISONE ACETATE
     Dates: start: 20200617, end: 20200619
  6. PANTOPRAZOLE SODIUM [Concomitant]
     Active Substance: PANTOPRAZOLE SODIUM
     Dates: start: 20191206, end: 20191206
  7. PANTOPRAZOLE SODIUM [Concomitant]
     Active Substance: PANTOPRAZOLE SODIUM
     Dates: start: 20191220, end: 20191220
  8. CETIRIZINE HYDROCHLORIDE [Concomitant]
     Active Substance: CETIRIZINE HYDROCHLORIDE
     Dates: start: 20191206, end: 20191206
  9. CETIRIZINE HYDROCHLORIDE [Concomitant]
     Active Substance: CETIRIZINE HYDROCHLORIDE
     Dates: start: 20191220, end: 20191220
  10. ACETAMINOPHEN [Concomitant]
     Active Substance: ACETAMINOPHEN
     Dates: start: 20191206, end: 20191206
  11. ACETAMINOPHEN [Concomitant]
     Active Substance: ACETAMINOPHEN
     Dates: start: 20191220, end: 20191220
  12. DIPHTHERIA AND TETANUS TOXOIDS AND ACELLULAR PERTUSSIS VACCINE ADSORBE [Concomitant]
     Active Substance: DIPHTHERIA AND TETANUS TOXOIDS AND ACELLULAR PERTUSSIS VACCINE ADSORBED
     Dates: start: 20201217, end: 20201217
  13. HAEMOPHILUS B CONJUGATE VACCINE NOS [Concomitant]
     Active Substance: HAEMOPHILUS B CONJUGATE VACCINE
     Dates: start: 20201217, end: 20201217
  14. HEPATITIS B VIRUS VACCINE [Concomitant]
     Active Substance: HEPATITIS B VIRUS VACCINE
     Dates: start: 20201217, end: 20201217
  15. PCV-13 [Concomitant]
     Dates: start: 20201217, end: 20201217
  16. POLIOMYELITIS VACCINE NOS [Concomitant]
     Active Substance: POLIOMYELITIS VACCINE
     Dates: start: 20201217, end: 20201217

REACTIONS (3)
  - Pyelocaliectasis [Recovered/Resolved]
  - B-lymphocyte count decreased [Recovered/Resolved]
  - Foetal exposure during pregnancy [Unknown]

NARRATIVE: CASE EVENT DATE: 20201007
